FAERS Safety Report 24964315 (Version 1)
Quarter: 2025Q1

REPORT INFORMATION
  Report Type: Other
  Country: IN (occurrence: IN)
  Receive Date: 20250213
  Receipt Date: 20250213
  Transmission Date: 20250409
  Serious: Yes (Hospitalization, Other)
  Sender: DEXCEL LTD.
  Company Number: IN-DEXPHARM-2025-0896

PATIENT
  Age: 6 Decade
  Sex: Female

DRUGS (3)
  1. MITOMYCIN C [Suspect]
     Active Substance: MITOMYCIN
  2. GENTAMICIN [Suspect]
     Active Substance: GENTAMICIN
  3. DEXAMETHASONE [Suspect]
     Active Substance: DEXAMETHASONE

REACTIONS (2)
  - Product administered at inappropriate site [Recovered/Resolved]
  - Ocular surface disease [Recovered/Resolved]
